FAERS Safety Report 11337950 (Version 1)
Quarter: 2015Q3

REPORT INFORMATION
  Report Type: Spontaneous
  Country: US (occurrence: US)
  Receive Date: 20150803
  Receipt Date: 20150803
  Transmission Date: 20151125
  Serious: No
  Sender: FDA-Public Use
  Company Number: US-ELI_LILLY_AND_COMPANY-US201001004218

PATIENT
  Age: 29 Year
  Sex: Female
  Weight: 95.24 kg

DRUGS (5)
  1. INSULIN [Concomitant]
     Active Substance: INSULIN NOS
     Dosage: 62 U, EACH EVENING
  2. NPH INSULIN [Concomitant]
     Active Substance: INSULIN BEEF
     Dosage: 92 U, UNK
  3. ZYPREXA [Suspect]
     Active Substance: OLANZAPINE
     Indication: DEPRESSION
     Dosage: 2.5 MG, EACH EVENING
     Dates: start: 2002
  4. NPH INSULIN [Concomitant]
     Active Substance: INSULIN BEEF
     Indication: GESTATIONAL DIABETES
     Dosage: 69 U, EACH MORNING
  5. INSULIN [Concomitant]
     Active Substance: INSULIN NOS
     Indication: GESTATIONAL DIABETES
     Dosage: 55 U, UNK

REACTIONS (4)
  - Gestational diabetes [Not Recovered/Not Resolved]
  - Blood glucose increased [Not Recovered/Not Resolved]
  - Exposure during pregnancy [Not Recovered/Not Resolved]
  - Protein urine present [Not Recovered/Not Resolved]

NARRATIVE: CASE EVENT DATE: 2009
